FAERS Safety Report 10154533 (Version 1)
Quarter: 2014Q2

REPORT INFORMATION
  Report Type: Spontaneous
  Country: US (occurrence: US)
  Receive Date: 20140506
  Receipt Date: 20140506
  Transmission Date: 20141212
  Serious: No
  Sender: FDA-Public Use
  Company Number: US-PFIZER INC-2014120881

PATIENT
  Sex: Female

DRUGS (2)
  1. EFFEXOR XR [Suspect]
     Dosage: 75 MG, DAILY
  2. EFFEXOR XR [Suspect]
     Dosage: 150 MG, 1X/DAY

REACTIONS (3)
  - Depression [Unknown]
  - Nervousness [Unknown]
  - Anxiety [Unknown]
